FAERS Safety Report 8470718-2 (Version None)
Quarter: 2012Q2

REPORT INFORMATION
  Report Type: 
  Country: None (occurrence: None)
  Receive Date: 20120627
  Receipt Date: 20120622
  Transmission Date: 20120825
  Serious: No
  Sender: FDA-Public Use
  Company Number: US-PFIZER INC-2012123246

PATIENT
  Sex: Male
  Weight: 92 kg

DRUGS (4)
  1. VOLTAREN [Concomitant]
     Dosage: UNK
  2. FLECTOR [Suspect]
     Indication: OFF LABEL USE
     Dosage: APPLY TO AFFECTED AREA CHANGE EVERY 12HRS
     Route: 061
     Dates: start: 20120201, end: 20120201
  3. FLECTOR [Suspect]
     Indication: MYALGIA
  4. FLECTOR [Suspect]
     Indication: BACK PAIN
     Dosage: UNK, AS NEEDED
     Route: 061
     Dates: start: 20120201, end: 20120401

REACTIONS (2)
  - PRE-EXISTING CONDITION IMPROVED [None]
  - THERAPEUTIC RESPONSE UNEXPECTED [None]
